FAERS Safety Report 5056868-1 (Version None)
Quarter: 2006Q2

REPORT INFORMATION
  Report Type: 
  Country: None (occurrence: None)
  Receive Date: 20060620
  Receipt Date: 20050902
  Transmission Date: 20061013
  Serious: Yes (Disabling)
  Sender: FDA-Public Use
  Company Number: M-04-020

PATIENT
  Age: 65 Year
  Sex: Male

DRUGS (10)
  1. PACERONE [Suspect]
     Indication: ATRIAL FIBRILLATION
     Dosage: 200 MG, QD, PO
     Route: 048
     Dates: start: 20030626, end: 20040101
  2. TOPROL-XL [Concomitant]
  3. COUMADIN [Concomitant]
  4. DARVOCET [Concomitant]
  5. NORVASC [Concomitant]
  6. NOVOLOG [Concomitant]
  7. MICARDIS [Concomitant]
  8. COLCHICINE [Concomitant]
  9. FLOMAX [Concomitant]
  10. ALLOPURINOL [Concomitant]

REACTIONS (2)
  - BLINDNESS [None]
  - HEART RATE ABNORMAL [None]
